FAERS Safety Report 17798498 (Version 1)
Quarter: 2020Q2

REPORT INFORMATION
  Report Type: Report from Study
  Country: None (occurrence: US)
  Receive Date: 20200518
  Receipt Date: 20200518
  Transmission Date: 20200714
  Serious: Yes (Hospitalization, Other)
  Sender: FDA-Public Use
  Company Number: US-ABBVIE-20K-163-3401867-00

PATIENT
  Age: 55 Year
  Sex: Female
  Weight: 68.1 kg

DRUGS (9)
  1. ROSUVASTATIN. [Concomitant]
     Active Substance: ROSUVASTATIN
     Indication: BLOOD CHOLESTEROL INCREASED
  2. CREON [Suspect]
     Active Substance: PANCRELIPASE AMYLASE\PANCRELIPASE LIPASE\PANCRELIPASE PROTEASE
     Indication: PANCREATIC FAILURE
     Dosage: 3 TABLETS BEFORE MEALS AND SNACKS
     Route: 048
     Dates: start: 201506
  3. GLUCOSAMINE W/VITAMIN D [Concomitant]
     Indication: ARTHRALGIA
  4. CITALOPRAM [Concomitant]
     Active Substance: CITALOPRAM HYDROBROMIDE
     Indication: ANXIETY
  5. CITALOPRAM [Concomitant]
     Active Substance: CITALOPRAM HYDROBROMIDE
     Indication: DEPRESSION
  6. VALIUM [Concomitant]
     Active Substance: DIAZEPAM
     Indication: ANXIETY
  7. TOPIRAMATE. [Concomitant]
     Active Substance: TOPIRAMATE
     Indication: MIGRAINE
  8. FOLIC ACID. [Concomitant]
     Active Substance: FOLIC ACID
     Indication: BLOOD FOLATE DECREASED
  9. ASPIRIN. [Concomitant]
     Active Substance: ASPIRIN
     Indication: CARDIAC DISORDER

REACTIONS (15)
  - Abnormal behaviour [Recovered/Resolved]
  - Choking [Recovering/Resolving]
  - Muscle operation [Recovered/Resolved]
  - Visual impairment [Recovering/Resolving]
  - Atrial septal defect [Recovered/Resolved]
  - Ischaemic stroke [Recovered/Resolved]
  - Hiatus hernia [Not Recovered/Not Resolved]
  - Hospitalisation [Recovered/Resolved]
  - Paralysis [Recovered/Resolved]
  - Dysphagia [Recovering/Resolving]
  - Fall [Recovered/Resolved]
  - Blindness [Recovered/Resolved]
  - Dysstasia [Recovered/Resolved]
  - Rotator cuff syndrome [Recovered/Resolved]
  - General physical health deterioration [Recovering/Resolving]

NARRATIVE: CASE EVENT DATE: 20150803
